FAERS Safety Report 14964089 (Version 2)
Quarter: 2018Q2

REPORT INFORMATION
  Report Type: Spontaneous
  Country: CN (occurrence: CN)
  Receive Date: 20180601
  Receipt Date: 20180601
  Transmission Date: 20180711
  Serious: Yes (Hospitalization)
  Sender: FDA-Public Use
  Company Number: PHHY2017CN203591

PATIENT
  Sex: Male

DRUGS (10)
  1. TOBRADEX [Suspect]
     Active Substance: DEXAMETHASONE\TOBRAMYCIN
     Indication: POSTOPERATIVE CARE
     Dosage: UNK UNK, Q2H
     Route: 047
  2. EPINEPHRINE. [Concomitant]
     Active Substance: EPINEPHRINE
     Indication: PRODUCT USED FOR UNKNOWN INDICATION
     Route: 065
  3. TOBRADEX [Suspect]
     Active Substance: DEXAMETHASONE\TOBRAMYCIN
     Indication: POSTOPERATIVE CARE
     Dosage: UNK UNK, QHS
     Route: 047
  4. PRANOPROFEN [Concomitant]
     Active Substance: PRANOPROFEN
     Indication: PREOPERATIVE CARE
     Dosage: UNK UNK, QID
     Route: 047
  5. LEVOFLOXACIN. [Concomitant]
     Active Substance: LEVOFLOXACIN
     Indication: PREOPERATIVE CARE
     Dosage: UNK UNK, Q2H
     Route: 047
  6. IODOPHOR [Concomitant]
     Active Substance: IODOPHOR
     Indication: PREOPERATIVE CARE
     Dosage: (DILUENT 1:500)
     Route: 065
  7. BFGF [Concomitant]
     Indication: POSTOPERATIVE CARE
     Dosage: UNK UNK, QID
     Route: 047
  8. BSS [Suspect]
     Active Substance: CALCIUM CHLORIDE\MAGNESIUM CHLORIDE\POTASSIUM CHLORIDE\SODIUM ACETATE\SODIUM CHLORIDE\SODIUM CITRATE
     Indication: PRODUCT USED FOR UNKNOWN INDICATION
     Dosage: UNK
     Route: 031
     Dates: start: 20170527, end: 20170527
  9. RINGERS SOLUTION [Concomitant]
     Active Substance: CALCIUM CHLORIDE\POTASSIUM CHLORIDE\SODIUM CHLORIDE
     Indication: PRODUCT USED FOR UNKNOWN INDICATION
     Route: 065
  10. PRANOPROFEN [Concomitant]
     Active Substance: PRANOPROFEN
     Indication: POSTOPERATIVE CARE
     Dosage: UNK
     Route: 047

REACTIONS (2)
  - Uveitis [Recovering/Resolving]
  - Visual impairment [Recovering/Resolving]
